FAERS Safety Report 8530755-6 (Version None)
Quarter: 2012Q3

REPORT INFORMATION
  Report Type: 
  Country: None (occurrence: None)
  Receive Date: 20120723
  Receipt Date: 20120718
  Transmission Date: 20120928
  Serious: Yes (Other)
  Sender: FDA-Public Use
  Company Number: PHHY2012CA001589

PATIENT
  Sex: Female

DRUGS (1)
  1. GILENYA [Suspect]
     Indication: RELAPSING-REMITTING MULTIPLE SCLEROSIS
     Dosage: 0.5 MG, DAILY
     Route: 048
     Dates: start: 20111221

REACTIONS (10)
  - OEDEMA PERIPHERAL [None]
  - EMPHYSEMA [None]
  - DYSPNOEA [None]
  - WEIGHT INCREASED [None]
  - DIZZINESS [None]
  - FALL [None]
  - ABDOMINAL DISTENSION [None]
  - COUGH [None]
  - PATELLA FRACTURE [None]
  - FOOT FRACTURE [None]
